FAERS Safety Report 18630294 (Version 1)
Quarter: 2020Q4

REPORT INFORMATION
  Report Type: Spontaneous
  Country: US (occurrence: US)
  Receive Date: 20201217
  Receipt Date: 20201217
  Transmission Date: 20210114
  Serious: Yes (Hospitalization, Other)
  Sender: FDA-Public Use
  Company Number: US-PFIZER INC-2019-05450

PATIENT
  Age: 67 Year
  Sex: Female

DRUGS (9)
  1. BRAFTOVI [Suspect]
     Active Substance: ENCORAFENIB
     Indication: MALIGNANT MELANOMA
     Dosage: 450 MG, 1X/DAY
     Route: 048
     Dates: start: 20190329
  2. DILAUDID [Concomitant]
     Active Substance: HYDROMORPHONE HYDROCHLORIDE
  3. SENNA [Concomitant]
     Active Substance: SENNA LEAF\SENNOSIDES\SENNOSIDES A AND B
  4. KEFLEX [Concomitant]
     Active Substance: CEPHALEXIN
     Indication: WHITE BLOOD CELL COUNT INCREASED
     Dosage: UNK
     Dates: start: 20190328, end: 20190407
  5. BRAFTOVI [Suspect]
     Active Substance: ENCORAFENIB
     Dosage: 450 MG, 1X/DAY
     Dates: start: 20200222
  6. GABAPENTIN. [Concomitant]
     Active Substance: GABAPENTIN
  7. MULTIVITAMINS [VITAMINS NOS] [Concomitant]
     Active Substance: VITAMINS
  8. MEKTOVI [Suspect]
     Active Substance: BINIMETINIB
     Indication: MALIGNANT MELANOMA
     Dosage: 45 MG, 2X/DAY
     Route: 048
     Dates: start: 20190329
  9. MEKTOVI [Suspect]
     Active Substance: BINIMETINIB
     Dosage: 45 MG, 2X/DAY (ONCE EVERY 12 HOURS)
     Dates: start: 20200222

REACTIONS (4)
  - Abdominal pain upper [Unknown]
  - Bacteraemia [Recovered/Resolved]
  - Pneumonia klebsiella [Recovered/Resolved]
  - Seizure [Unknown]

NARRATIVE: CASE EVENT DATE: 20190403
